FAERS Safety Report 5080602-2 (Version None)
Quarter: 2006Q3

REPORT INFORMATION
  Report Type: 
  Country: None (occurrence: None)
  Receive Date: 20060815
  Receipt Date: 20060718
  Transmission Date: 20061208
  Serious: Yes (Hospitalization)
  Sender: FDA-Public Use
  Company Number: FR-LMS-060101

PATIENT
  Age: 77 Year
  Sex: Female

DRUGS (1)
  1. NABUMETONE [Suspect]
     Indication: OSTEOARTHRITIS
     Dosage: 2G PER DAY
     Route: 048
     Dates: start: 20041004, end: 20051011

REACTIONS (11)
  - ABDOMINAL PAIN [None]
  - ABDOMINAL PAIN UPPER [None]
  - CARDIAC FAILURE [None]
  - CHEST PAIN [None]
  - DIARRHOEA [None]
  - ECCHYMOSIS [None]
  - ENTEROCOLITIS HAEMORRHAGIC [None]
  - MYOCARDIAL INFARCTION [None]
  - PURPURA [None]
  - RECTAL HAEMORRHAGE [None]
  - VOMITING [None]
